FAERS Safety Report 15921731 (Version 1)
Quarter: 2019Q1

REPORT INFORMATION
  Report Type: Spontaneous
  Country: US (occurrence: US)
  Receive Date: 20190115
  Receipt Date: 20190115
  Transmission Date: 20190417
  Serious: Yes (Hospitalization)
  Sender: FDA-Public Use
  Company Number: None

PATIENT
  Age: 71 Year
  Sex: Male

DRUGS (4)
  1. CRAMP RELIEF TABS [Concomitant]
  2. LUPRON DEPOT [Concomitant]
     Active Substance: LEUPROLIDE ACETATE
  3. ZYTIGA [Suspect]
     Active Substance: ABIRATERONE ACETATE
     Indication: PROSTATE CANCER
     Route: 048
     Dates: start: 20180411
  4. GABAPENTIN. [Concomitant]
     Active Substance: GABAPENTIN

REACTIONS (2)
  - Pain [None]
  - Spinal operation [None]

NARRATIVE: CASE EVENT DATE: 20181001
